FAERS Safety Report 15269201 (Version 1)
Quarter: 2018Q3

REPORT INFORMATION
  Report Type: Spontaneous
  Country: TW (occurrence: TW)
  Receive Date: 20180813
  Receipt Date: 20180813
  Transmission Date: 20181010
  Serious: Yes (Life-Threatening)
  Sender: FDA-Public Use
  Company Number: TW-ROCHE-2166600

PATIENT
  Age: 76 Year
  Sex: Female
  Weight: 50 kg

DRUGS (6)
  1. THROUGH [Concomitant]
     Route: 048
     Dates: start: 20170717, end: 20180724
  2. MAGNESIUM OXIDE. [Concomitant]
     Active Substance: MAGNESIUM OXIDE
     Route: 048
     Dates: start: 20180717, end: 20180724
  3. RANITIDINE. [Concomitant]
     Active Substance: RANITIDINE
     Route: 048
     Dates: start: 20180717, end: 20180724
  4. SOVALDI [Suspect]
     Active Substance: SOFOSBUVIR
     Indication: CHRONIC HEPATITIS C
     Route: 048
     Dates: start: 20180726, end: 20180801
  5. ROBATROL [Suspect]
     Active Substance: RIBAVIRIN
     Indication: CHRONIC HEPATITIS C
     Route: 048
     Dates: start: 20180726, end: 20180801
  6. LUCKYHEPA [Concomitant]
     Indication: CHRONIC HEPATITIS
     Route: 048
     Dates: start: 201709, end: 20180724

REACTIONS (3)
  - Purpura [Unknown]
  - Contusion [Unknown]
  - Platelet count decreased [Recovering/Resolving]

NARRATIVE: CASE EVENT DATE: 20180728
